FAERS Safety Report 24863987 (Version 2)
Quarter: 2025Q1

REPORT INFORMATION
  Report Type: Spontaneous
  Country: JP (occurrence: JP)
  Receive Date: 20250120
  Receipt Date: 20250123
  Transmission Date: 20250409
  Serious: Yes (Other)
  Sender: PFIZER
  Company Number: JP-PFIZER INC-PV202500007528

PATIENT
  Age: 9 Decade

DRUGS (2)
  1. PAXLOVID [Suspect]
     Active Substance: NIRMATRELVIR\RITONAVIR
     Indication: COVID-19 treatment
     Dosage: NIRMATRELVIR 300 MG / RITONAVIR 100 MG, 2X/DAY
     Route: 048
     Dates: start: 20250114, end: 20250115
  2. PAXLOVID [Suspect]
     Active Substance: NIRMATRELVIR\RITONAVIR
     Dosage: NIRMATRELVIR 300 MG / RITONAVIR 100 MG, 2X/DAY
     Route: 048
     Dates: start: 20250117

REACTIONS (2)
  - Renal impairment [Recovering/Resolving]
  - Off label use [Unknown]

NARRATIVE: CASE EVENT DATE: 20250114
